FAERS Safety Report 7770033-6 (Version None)
Quarter: 2011Q3

REPORT INFORMATION
  Report Type: 
  Country: None (occurrence: None)
  Receive Date: 20110922
  Receipt Date: 20100527
  Transmission Date: 20111222
  Serious: No
  Sender: FDA-Public Use
  Company Number: US-ASTRAZENECA-2010SE33719

PATIENT
  Age: 41 Year
  Sex: Male
  Weight: 122 kg

DRUGS (6)
  1. ZYPREXA [Concomitant]
  2. SEROQUEL [Suspect]
     Route: 048
     Dates: start: 20031021
  3. REMERON [Concomitant]
     Dates: start: 20031021
  4. DEPAKOTE [Concomitant]
     Indication: CONVULSION
     Dates: start: 20060101
  5. SEROQUEL [Suspect]
     Dosage: 25 TO 200 MG
     Route: 048
     Dates: start: 19980707
  6. GLIPIZIDE [Concomitant]
     Dates: start: 20031126

REACTIONS (2)
  - MYALGIA [None]
  - TYPE 2 DIABETES MELLITUS [None]
